FAERS Safety Report 10738250 (Version 2)
Quarter: 2015Q1

REPORT INFORMATION
  Report Type: Spontaneous
  Country: US (occurrence: US)
  Receive Date: 20150126
  Receipt Date: 20150209
  Transmission Date: 20150721
  Serious: Yes (Hospitalization)
  Sender: FDA-Public Use
  Company Number: US-MALLINCKRODT-T201500016

PATIENT
  Age: 44 Year
  Sex: Male

DRUGS (2)
  1. H.P. ACTHAR [Suspect]
     Active Substance: CORTICOTROPIN
     Dosage: 80 U, BIWEEKLY
     Route: 058
     Dates: start: 201501
  2. H.P. ACTHAR [Suspect]
     Active Substance: CORTICOTROPIN
     Indication: IGA NEPHROPATHY
     Dosage: 40 U, BIWEEKLY
     Route: 058
     Dates: start: 20140517, end: 201501

REACTIONS (11)
  - Malaise [Recovering/Resolving]
  - Renal impairment [None]
  - Nephrotic syndrome [Recovering/Resolving]
  - Asthenia [Recovering/Resolving]
  - Weight increased [Recovering/Resolving]
  - Blood potassium decreased [Unknown]
  - Insomnia [Unknown]
  - Drug ineffective [Unknown]
  - Generalised oedema [Recovering/Resolving]
  - Hypoalbuminaemia [Recovering/Resolving]
  - Vitamin D decreased [Unknown]

NARRATIVE: CASE EVENT DATE: 201501
